FAERS Safety Report 6303530-0 (Version None)
Quarter: 2009Q3

REPORT INFORMATION
  Report Type: 
  Country: None (occurrence: None)
  Receive Date: 20090807
  Receipt Date: 20090807
  Transmission Date: 20100115
  Serious: Yes (Life-Threatening, Hospitalization, Disabling)
  Sender: FDA-Public Use
  Company Number: None

PATIENT
  Sex: Female
  Weight: 57.1532 kg

DRUGS (1)
  1. YAZ [Suspect]
     Indication: OVARIAN CYST
     Dosage: 1 A DAY 1 A DAY
     Dates: start: 20081101, end: 20081201

REACTIONS (14)
  - ABDOMINAL PAIN [None]
  - BREAST TENDERNESS [None]
  - BURNING SENSATION [None]
  - DYSPNOEA [None]
  - HEADACHE [None]
  - HYPERTENSION [None]
  - JOINT SWELLING [None]
  - MUSCLE TWITCHING [None]
  - PAIN IN EXTREMITY [None]
  - PELVIC PAIN [None]
  - RASH [None]
  - TREMOR [None]
  - URINARY TRACT INFECTION [None]
  - VIBRATORY SENSE INCREASED [None]
